FAERS Safety Report 16598545 (Version 1)
Quarter: 2019Q3

REPORT INFORMATION
  Report Type: Spontaneous
  Country: DE (occurrence: DE)
  Receive Date: 20190719
  Receipt Date: 20190719
  Transmission Date: 20191004
  Serious: Yes (Hospitalization)
  Sender: FDA-Public Use
  Company Number: DE-PFIZER INC-2019304151

PATIENT
  Age: 80 Year
  Sex: Female

DRUGS (7)
  1. GEMCITABINE HYDROCHLORIDE. [Suspect]
     Active Substance: GEMCITABINE HYDROCHLORIDE
     Dosage: 0.75 G, UNK
     Dates: start: 20171207
  2. BISOPROLOL [Concomitant]
     Active Substance: BISOPROLOL
     Dosage: 2.5 MG, 2X/DAY (0.5-0-0.5-0)
  3. TRIAMTERENE/HYDROCHLOROTHIAZIDE [Concomitant]
     Active Substance: HYDROCHLOROTHIAZIDE\TRIAMTERENE
     Dosage: 0.5 DF, 1X/DAY (25/50 MG, 0.5-0-0-0)
  4. VALSARTAN. [Concomitant]
     Active Substance: VALSARTAN
     Dosage: 120 MG, DAILY (0.5-0-1-0)
  5. NITRENDIPIN [Concomitant]
     Active Substance: NITRENDIPINE
     Dosage: 5 MG, 2X/DAY (0.5-0-0.5-0)
  6. ACETYLSALICYLIC ACID [Concomitant]
     Active Substance: ASPIRIN
     Dosage: 125 MG, 1X/DAY (0-0-0.25-0)
  7. TAVOR (LORAZEPAM) [Concomitant]
     Active Substance: LORAZEPAM
     Dosage: 0.5 MG, 1X/DAY (0-0-0.5-0)

REACTIONS (5)
  - Tachycardia [Unknown]
  - General physical health deterioration [Unknown]
  - Gamma-glutamyltransferase increased [Unknown]
  - Alanine aminotransferase increased [Unknown]
  - Asthenia [Unknown]

NARRATIVE: CASE EVENT DATE: 20171214
